FAERS Safety Report 23934974 (Version 1)
Quarter: 2024Q2

REPORT INFORMATION
  Report Type: Spontaneous
  Country: US (occurrence: US)
  Receive Date: 20240604
  Receipt Date: 20240604
  Transmission Date: 20240716
  Serious: No
  Sender: FDA-Public Use
  Company Number: US-AUROBINDO-AUR-APL-2023-049604

PATIENT
  Sex: Male

DRUGS (2)
  1. ONDANSETRON [Suspect]
     Active Substance: ONDANSETRON
     Indication: Vertigo
     Dosage: 1 DOSAGE FORM, AS NECESSARY (1 TABLET AS NEEDED)
     Route: 048
     Dates: start: 202206
  2. ONDANSETRON [Suspect]
     Active Substance: ONDANSETRON
     Indication: Illness

REACTIONS (4)
  - Product use in unapproved indication [Unknown]
  - Product blister packaging issue [Unknown]
  - Wrong technique in product usage process [Unknown]
  - Product packaging difficult to open [Unknown]
